FAERS Safety Report 8422234 (Version 2)
Quarter: 2014Q2

REPORT INFORMATION
  Report Type: Spontaneous
  Country: CN (occurrence: CN)
  Receive Date: 20120223
  Receipt Date: 20140410
  Transmission Date: 20141212
  Serious: Yes (Other)
  Sender: FDA-Public Use
  Company Number: CN-MPIJNJ-2012-01059

PATIENT
  Sex: 0

DRUGS (1)
  1. VELCADE [Suspect]
     Indication: PLASMA CELL MYELOMA
     Dosage: 2.0 MG, UNK
     Route: 042
     Dates: start: 201112, end: 201201

REACTIONS (4)
  - Gastric disorder [Recovered/Resolved]
  - Heart rate increased [Recovered/Resolved]
  - Pyrexia [Recovered/Resolved]
  - Neuropathy peripheral [Recovered/Resolved]
